APPROVED DRUG PRODUCT: HYDROCODONE BITARTRATE AND IBUPROFEN
Active Ingredient: HYDROCODONE BITARTRATE; IBUPROFEN
Strength: 7.5MG;200MG
Dosage Form/Route: TABLET;ORAL
Application: A076023 | Product #001
Applicant: TEVA PHARMACEUTICALS USA INC
Approved: Apr 11, 2003 | RLD: No | RS: No | Type: DISCN